FAERS Safety Report 19965182 (Version 1)
Quarter: 2021Q4

REPORT INFORMATION
  Report Type: Spontaneous
  Country: CA (occurrence: CA)
  Receive Date: 20211018
  Receipt Date: 20211018
  Transmission Date: 20220303
  Serious: Yes (Death, Other)
  Sender: FDA-Public Use
  Company Number: CA-JNJFOC-20211023942

PATIENT

DRUGS (2)
  1. BOSENTAN [Suspect]
     Active Substance: BOSENTAN
     Indication: Pulmonary arterial hypertension
     Route: 048
  2. TADALAFIL [Concomitant]
     Active Substance: TADALAFIL

REACTIONS (9)
  - Pulmonary oedema [Fatal]
  - Peripheral swelling [Fatal]
  - Dyspnoea [Fatal]
  - Haemoptysis [Fatal]
  - Gait disturbance [Fatal]
  - Gait inability [Fatal]
  - Movement disorder [Fatal]
  - Cough [Fatal]
  - Therapy cessation [Fatal]
